FAERS Safety Report 8288522-7 (Version None)
Quarter: 2012Q2

REPORT INFORMATION
  Report Type: 
  Country: None (occurrence: None)
  Receive Date: 20120416
  Receipt Date: 20120402
  Transmission Date: 20120825
  Serious: Yes (Death, Other)
  Sender: FDA-Public Use
  Company Number: FR-PFIZER INC-2012058324

PATIENT
  Age: 95 Year
  Sex: Female

DRUGS (15)
  1. ARGATROBAN [Suspect]
     Dosage: 0.7 MG, 1 HR.
     Route: 042
     Dates: start: 20120206, end: 20120206
  2. CALCIPARINE [Concomitant]
     Indication: RENAL FAILURE
     Dosage: UNK
     Dates: start: 20120119, end: 20120131
  3. LASIX [Concomitant]
     Indication: RENAL FAILURE
  4. ARGATROBAN [Suspect]
     Dosage: 1.5 MG, 1 HR.
     Route: 042
     Dates: start: 20120205, end: 20120205
  5. PIPERACILLIN AND TAZOBACTAM [Concomitant]
     Indication: PNEUMONIA
     Dosage: UNK
     Dates: start: 20120130
  6. ARGATROBAN [Suspect]
     Indication: HEPARIN-INDUCED THROMBOCYTOPENIA
     Dosage: 0.5 MG, 1 IN 1 HR.
     Route: 042
     Dates: start: 20120201, end: 20120212
  7. ROCEPHIN [Concomitant]
     Indication: PNEUMONIA
     Dosage: UNK
     Dates: start: 20120124, end: 20120130
  8. BISOPROLOL FUMARATE [Concomitant]
  9. CORDARONE [Concomitant]
  10. LOVENOX [Concomitant]
     Indication: PROPHYLAXIS
     Dosage: UNK
     Dates: end: 20120119
  11. ARGATROBAN [Suspect]
     Dosage: OVERDOSE (DOSAGE UNSPECIFIED)
     Route: 042
     Dates: start: 20120212, end: 20120212
  12. COUMADIN [Concomitant]
     Dosage: UNK
  13. GENTAMICIN [Concomitant]
     Indication: PNEUMONIA
     Dosage: UNK
     Dates: start: 20120124, end: 20120124
  14. ARGATROBAN [Suspect]
     Dosage: 0.4 MG, 1 HR.
     Route: 042
     Dates: start: 20120212, end: 20120212
  15. RAMIPRIL [Concomitant]

REACTIONS (2)
  - OVERDOSE [None]
  - GASTROINTESTINAL HAEMORRHAGE [None]
